FAERS Safety Report 9322312 (Version 1)
Quarter: 2013Q2

REPORT INFORMATION
  Report Type: Spontaneous
  Country: US (occurrence: US)
  Receive Date: 20130531
  Receipt Date: 20130531
  Transmission Date: 20140414
  Serious: Yes (Other)
  Sender: FDA-Public Use
  Company Number: US-GLAXOSMITHKLINE-A1024931A

PATIENT
  Age: 52 Year
  Sex: Female

DRUGS (1)
  1. BENLYSTA [Suspect]
     Indication: PRODUCT USED FOR UNKNOWN INDICATION
     Dosage: 120MG EVERY 28 DAYS
     Route: 065
     Dates: start: 20130204

REACTIONS (10)
  - Tooth infection [Unknown]
  - Swelling face [Unknown]
  - Sinusitis [Unknown]
  - Toothache [Unknown]
  - Tooth extraction [Unknown]
  - Influenza like illness [Unknown]
  - Cough [Unknown]
  - Pyrexia [Unknown]
  - Pain [Unknown]
  - Upper respiratory tract infection [Unknown]
